FAERS Safety Report 5638286-8 (Version None)
Quarter: 2008Q1

REPORT INFORMATION
  Report Type: 
  Country: None (occurrence: None)
  Receive Date: 20080226
  Receipt Date: 20080226
  Transmission Date: 20080703
  Serious: Yes (Life-Threatening)
  Sender: FDA-Public Use
  Company Number: None

PATIENT
  Sex: Male

DRUGS (1)
  1. HEPARIN [Suspect]
     Indication: ANTICOAGULANT THERAPY
     Dosage: 35,000 UNITS ONCE IV BOLUS; 1 DOSE ONLY
     Route: 040
     Dates: start: 20080208, end: 20080208

REACTIONS (1)
  - BLOOD PRESSURE DECREASED [None]
